FAERS Safety Report 8559626-6 (Version None)
Quarter: 2012Q3

REPORT INFORMATION
  Report Type: 
  Country: None (occurrence: None)
  Receive Date: 20120802
  Receipt Date: 20120720
  Transmission Date: 20120928
  Serious: No
  Sender: FDA-Public Use
  Company Number: US-PFIZER INC-2012169712

PATIENT
  Sex: Male
  Weight: 90.703 kg

DRUGS (10)
  1. TAPAZOLE [Suspect]
     Dosage: 10 MG, 3X/DAY
     Route: 048
     Dates: end: 20120701
  2. TAPAZOLE [Suspect]
     Dosage: UNK
     Dates: start: 20120701
  3. ALPHAGAN [Concomitant]
     Dosage: UNK
     Route: 047
  4. BRINZOLAMIDE [Concomitant]
     Dosage: UNK
     Route: 047
  5. TAPAZOLE [Suspect]
     Indication: HYPERTHYROIDISM
     Dosage: TWO AND HALF TABLET OF 10MG BY SPLITTING, 2X/DAY
     Route: 048
  6. TAPAZOLE [Suspect]
     Dosage: THREE TABLETS 10MG, 2X/DAY
     Route: 048
     Dates: end: 20120712
  7. TAPAZOLE [Suspect]
     Dosage: 10 MG, 3X/DAY
  8. TAPAZOLE [Suspect]
     Indication: THYROID DISORDER
     Dosage: TWO TABLETS 10MG, 1X/DAY
     Route: 048
  9. DEXAMETHASONE/TOBRAMYCIN SULFATE [Concomitant]
     Dosage: UNK
     Route: 047
  10. XALATAN [Concomitant]
     Dosage: UNK
     Route: 047

REACTIONS (8)
  - FEELING ABNORMAL [None]
  - HEADACHE [None]
  - INCREASED UPPER AIRWAY SECRETION [None]
  - PRODUCT CONTAINER SEAL ISSUE [None]
  - ANXIETY [None]
  - PHARYNGEAL DISORDER [None]
  - PRODUCT TAMPERING [None]
  - PRODUCT PACKAGING ISSUE [None]
